FAERS Safety Report 9314262 (Version 2)
Quarter: 2013Q2

REPORT INFORMATION
  Report Type: Report from Study
  Country: TR (occurrence: TR)
  Receive Date: 20130529
  Receipt Date: 20130606
  Transmission Date: 20140414
  Serious: Yes (Hospitalization)
  Sender: FDA-Public Use
  Company Number: PHHY2013TR052481

PATIENT
  Age: 4 Year
  Sex: Male
  Weight: 15.7 kg

DRUGS (1)
  1. EXJADE [Suspect]
     Indication: THALASSAEMIA BETA
     Dosage: 500 MG, DAILY
     Route: 048
     Dates: start: 20120730

REACTIONS (1)
  - Food poisoning [Recovered/Resolved]
